FAERS Safety Report 5525512-9 (Version None)
Quarter: 2007Q4

REPORT INFORMATION
  Report Type: 
  Country: None (occurrence: None)
  Receive Date: 20071126
  Receipt Date: 20071119
  Transmission Date: 20080405
  Serious: Yes (Life-Threatening, Hospitalization)
  Sender: FDA-Public Use
  Company Number: A0695157A

PATIENT
  Age: 42 Year
  Sex: Male

DRUGS (4)
  1. ARIXTRA [Suspect]
     Indication: DEEP VEIN THROMBOSIS
     Dosage: 10MG PER DAY
     Route: 058
  2. ASPIRIN [Concomitant]
  3. DILAUDID [Concomitant]
  4. AVINZA [Concomitant]

REACTIONS (1)
  - COAGULOPATHY [None]
